FAERS Safety Report 9293747 (Version 2)
Quarter: 2013Q4

REPORT INFORMATION
  Report Type: Spontaneous
  Country: US (occurrence: US)
  Receive Date: 20130516
  Receipt Date: 20131029
  Transmission Date: 20140711
  Serious: Yes (Death, Hospitalization)
  Sender: FDA-Public Use
  Company Number: US-B.I. PHARMACEUTICALS,INC./RIDGEFIELD-2013-BI-13755BP

PATIENT
  Age: 87 Year
  Sex: Female
  Weight: 54.43 kg

DRUGS (16)
  1. PRADAXA [Suspect]
     Indication: ANTICOAGULANT THERAPY
     Dosage: 300 MG
     Route: 048
     Dates: start: 20110825, end: 20111226
  2. PRADAXA [Suspect]
     Indication: ATRIAL FIBRILLATION
  3. PROCRIT [Concomitant]
  4. VITAMIN B12 [Concomitant]
  5. ARICEPT [Concomitant]
     Dates: start: 201102, end: 201201
  6. METOPROLOL [Concomitant]
     Dates: start: 201102, end: 201201
  7. MULTIVITAMIN [Concomitant]
  8. TYLENOL [Concomitant]
  9. MIRALAX [Concomitant]
  10. PRILOSEC [Concomitant]
     Dates: start: 201102, end: 201201
  11. TRAZODONE [Concomitant]
  12. LASIX [Concomitant]
  13. KLOR-CON [Concomitant]
  14. CYMBALTA [Concomitant]
     Dates: start: 201102, end: 201201
  15. EFFEXOR [Concomitant]
     Dates: start: 201102, end: 201201
  16. MEGACE [Concomitant]
     Dates: start: 201102, end: 201201

REACTIONS (4)
  - Cardio-respiratory arrest [Fatal]
  - Respiratory arrest [Fatal]
  - Gastrointestinal haemorrhage [Recovered/Resolved]
  - International normalised ratio increased [Unknown]
